FAERS Safety Report 9101505 (Version 1)
Quarter: 2013Q1

REPORT INFORMATION
  Report Type: Report from Study
  Country: US (occurrence: US)
  Receive Date: 20130218
  Receipt Date: 20130218
  Transmission Date: 20140127
  Serious: No
  Sender: FDA-Public Use
  Company Number: US-ABBOTT-12P-163-0944820-00

PATIENT
  Age: 47 Year
  Sex: Female
  Weight: 59.93 kg

DRUGS (7)
  1. SIMCOR 500MG/20MG [Suspect]
     Indication: LOW DENSITY LIPOPROTEIN INCREASED
     Dosage: 500/20MG PER ORAL AT BEDTIME
     Route: 048
     Dates: start: 20120606
  2. SIMCOR 500MG/20MG [Suspect]
     Indication: BLOOD TRIGLYCERIDES INCREASED
  3. ASPIRIN [Concomitant]
     Indication: PRODUCT USED FOR UNKNOWN INDICATION
     Dosage: 30 MIN PRIOR TO DOSE OF SIMCOR
     Route: 048
  4. METFORMIN [Concomitant]
     Indication: PRODUCT USED FOR UNKNOWN INDICATION
     Route: 048
  5. NEXIUM [Concomitant]
     Indication: PRODUCT USED FOR UNKNOWN INDICATION
     Dosage: 1 IN AM AND 1 PRN AT BEDTIME
     Route: 048
  6. LIBRAX [Concomitant]
     Indication: PRODUCT USED FOR UNKNOWN INDICATION
     Dosage: DAILY
     Route: 048
  7. ORTHOTRICYCLINE [Concomitant]
     Indication: CONTRACEPTION
     Dosage: PILL DAILY
     Route: 048

REACTIONS (2)
  - Flushing [Recovered/Resolved]
  - Pruritus [Unknown]
